FAERS Safety Report 9276612 (Version 2)
Quarter: 2013Q2

REPORT INFORMATION
  Report Type: Spontaneous
  Country: US (occurrence: US)
  Receive Date: 20130507
  Receipt Date: 20130508
  Transmission Date: 20140414
  Serious: No
  Sender: FDA-Public Use
  Company Number: US-ASTRAZENECA-2013SE24614

PATIENT
  Age: 35 Year
  Sex: Female
  Weight: 52.2 kg

DRUGS (4)
  1. PULMICORT FLEXHALER [Suspect]
     Indication: ASTHMA
     Dosage: 180 MCG 1 PUFF, BID
     Route: 055
     Dates: start: 201101
  2. PULMICORT FLEXHALER [Suspect]
     Indication: ASTHMA
     Dosage: 180 MCG 2 PUFFS , BID
     Route: 055
  3. PULMICORT FLEXHALER [Suspect]
     Indication: ASTHMA
     Dosage: 180 MCG 1 PUFF , BID
     Route: 055
  4. PROVENTIL [Concomitant]
     Indication: PROPHYLAXIS AGAINST BRONCHOSPASM

REACTIONS (4)
  - Asthma [Recovering/Resolving]
  - Malaise [Unknown]
  - Nasopharyngitis [Unknown]
  - Drug ineffective [Unknown]
